FAERS Safety Report 8150835-7 (Version None)
Quarter: 2012Q1

REPORT INFORMATION
  Report Type: 
  Country: None (occurrence: None)
  Receive Date: 20120220
  Receipt Date: 20120210
  Transmission Date: 20120608
  Serious: Yes (Hospitalization, Other)
  Sender: FDA-Public Use
  Company Number: DE-ABBOTT-12P-062-0903499-00

PATIENT
  Sex: Male
  Weight: 137 kg

DRUGS (4)
  1. PREDNISOLONE [Concomitant]
     Indication: PRODUCT USED FOR UNKNOWN INDICATION
     Dosage: 10 MG DAILY
     Route: 048
     Dates: start: 20030101
  2. NEBIVOLOL [Concomitant]
     Indication: HYPERTENSION
     Dosage: 5 MG DAILY
     Dates: start: 20100421
  3. BENZBROMARON [Concomitant]
     Indication: GOUT
     Dosage: 100 MG DAILY
     Dates: start: 20090601
  4. HUMIRA [Suspect]
     Indication: RHEUMATOID ARTHRITIS
     Route: 058
     Dates: start: 20100421, end: 20120104

REACTIONS (5)
  - EPIGASTRIC DISCOMFORT [None]
  - ABDOMINAL PAIN [None]
  - CHOLELITHIASIS [None]
  - GASTRITIS [None]
  - GASTRIC DISORDER [None]
